FAERS Safety Report 14202036 (Version 2)
Quarter: 2018Q1

REPORT INFORMATION
  Report Type: Report from Study
  Country: US (occurrence: US)
  Receive Date: 20171117
  Receipt Date: 20180109
  Transmission Date: 20180508
  Serious: Yes (Life-Threatening, Other)
  Sender: FDA-Public Use
  Company Number: US-BRISTOL-MYERS SQUIBB COMPANY-BMS-2017-103273

PATIENT
  Age: 62 Year
  Sex: Female

DRUGS (6)
  1. BLINDED PLACEBO [Suspect]
     Active Substance: INVESTIGATIONAL PRODUCT
     Indication: GRAFT VERSUS HOST DISEASE
     Dosage: 675 MG, UNK
     Route: 042
     Dates: start: 20171023
  2. BLINDED PLACEBO [Suspect]
     Active Substance: INVESTIGATIONAL PRODUCT
     Indication: PRODUCT USED FOR UNKNOWN INDICATION
     Dosage: 675 MG, UNK
     Route: 042
     Dates: start: 20171030
  3. BLINDED ABATACEPT [Suspect]
     Active Substance: ABATACEPT
     Indication: GRAFT VERSUS HOST DISEASE
     Dosage: 675 MG, UNK
     Route: 042
     Dates: start: 20171023
  4. BLINDED PLACEBO [Suspect]
     Active Substance: INVESTIGATIONAL PRODUCT
     Indication: PRODUCT USED FOR UNKNOWN INDICATION
     Dosage: 675 MG, UNK
     Route: 042
     Dates: start: 20171108
  5. BLINDED ABATACEPT [Suspect]
     Active Substance: ABATACEPT
     Indication: PRODUCT USED FOR UNKNOWN INDICATION
     Dosage: 675 MG, UNK
     Route: 042
     Dates: start: 20171030
  6. BLINDED ABATACEPT [Suspect]
     Active Substance: ABATACEPT
     Indication: PRODUCT USED FOR UNKNOWN INDICATION
     Dosage: 675 MG, UNK
     Route: 042
     Dates: start: 20171108

REACTIONS (1)
  - Respiratory failure [Not Recovered/Not Resolved]

NARRATIVE: CASE EVENT DATE: 20171113
